FAERS Safety Report 6571274-6 (Version None)
Quarter: 2010Q1

REPORT INFORMATION
  Report Type: 
  Country: None (occurrence: None)
  Receive Date: 20100129
  Receipt Date: 20100122
  Transmission Date: 20100710
  Serious: Yes (Other)
  Sender: FDA-Public Use
  Company Number: 2010SP004801

PATIENT
  Age: 5 Year
  Weight: 20 kg

DRUGS (3)
  1. CELESTONE [Suspect]
     Indication: BRONCHITIS
     Dosage: 200 GTT;QAM;PO
     Route: 048
     Dates: start: 20091202, end: 20091205
  2. AMIODARONE HCL [Concomitant]
  3. PROPRANOLOL [Concomitant]

REACTIONS (3)
  - ARRHYTHMIA [None]
  - BRADYCARDIA [None]
  - TACHYCARDIA [None]
